FAERS Safety Report 13160220 (Version 2)
Quarter: 2018Q4

REPORT INFORMATION
  Report Type: Spontaneous
  Country: FR (occurrence: FR)
  Receive Date: 20170127
  Receipt Date: 20181104
  Transmission Date: 20190204
  Serious: Yes (Hospitalization, Other)
  Sender: FDA-Public Use
  Company Number: FR-BRISTOL-MYERS SQUIBB COMPANY-BMS-2017-004563

PATIENT
  Age: 63 Year
  Sex: Male

DRUGS (6)
  1. HYDREA [Suspect]
     Active Substance: HYDROXYUREA
     Indication: PRODUCT USED FOR UNKNOWN INDICATION
     Dosage: 1 DF, UNK
     Route: 048
  2. HYDREA [Suspect]
     Active Substance: HYDROXYUREA
     Indication: PRODUCT USED FOR UNKNOWN INDICATION
     Dosage: 1 U, QD, CONTINUOUSLY
     Route: 048
     Dates: start: 201203
  3. HYDREA [Suspect]
     Active Substance: HYDROXYUREA
     Indication: PRODUCT USED FOR UNKNOWN INDICATION
     Dosage: 9 U, QWK
     Route: 048
     Dates: start: 201401
  4. HYDREA [Suspect]
     Active Substance: HYDROXYUREA
     Indication: PORTAL VEIN THROMBOSIS
     Dosage: 3 U, QWK
     Route: 048
     Dates: start: 20071210
  5. HYDREA [Suspect]
     Active Substance: HYDROXYUREA
     Indication: PRODUCT USED FOR UNKNOWN INDICATION
     Dosage: 1 U, QD
     Route: 048
     Dates: start: 20091218
  6. HYDREA [Suspect]
     Active Substance: HYDROXYUREA
     Indication: PRODUCT USED FOR UNKNOWN INDICATION
     Dosage: 2 U, QD
     Route: 048
     Dates: start: 201509

REACTIONS (14)
  - Mole excision [Unknown]
  - Portal hypertensive gastropathy [Unknown]
  - Actinic keratosis [Recovered/Resolved]
  - Melanocytic naevus [Recovered/Resolved]
  - Gastrointestinal haemorrhage [Unknown]
  - Iron deficiency anaemia [Unknown]
  - Product use in unapproved indication [Unknown]
  - Squamous cell carcinoma of skin [Recovered/Resolved]
  - Mass [Unknown]
  - Transfusion [Unknown]
  - Plastic surgery [Unknown]
  - Bowen^s disease [Recovered/Resolved]
  - Basal cell carcinoma [Recovered/Resolved with Sequelae]
  - Varices oesophageal [Unknown]

NARRATIVE: CASE EVENT DATE: 200909
